FAERS Safety Report 12960042 (Version 1)
Quarter: 2016Q4

REPORT INFORMATION
  Report Type: Spontaneous
  Country: IN (occurrence: US)
  Receive Date: 20161119
  Receipt Date: 20161119
  Transmission Date: 20170207
  Serious: No
  Sender: FDA-Public Use
  Company Number: None

PATIENT
  Age: 60 Year
  Sex: Male
  Weight: 78 kg

DRUGS (4)
  1. MODERIBA [Suspect]
     Active Substance: RIBAVIRIN
     Indication: HEPATITIS C
     Route: 048
  2. ANTACIDS [Concomitant]
     Active Substance: UNSPECIFIED INGREDIENT
  3. PAIN KILLERS [Concomitant]
     Active Substance: UNSPECIFIED INGREDIENT
  4. PEG-INF ACTIVE INGREDIENT: PEGINTERFERON ALPHA 2B [Suspect]
     Active Substance: PEGINTERFERON ALFA-2B

REACTIONS (2)
  - Tinnitus [None]
  - Hypoacusis [None]

NARRATIVE: CASE EVENT DATE: 20160910
